FAERS Safety Report 6896617-5 (Version None)
Quarter: 2010Q3

REPORT INFORMATION
  Report Type: 
  Country: None (occurrence: None)
  Receive Date: 20100802
  Receipt Date: 20070110
  Transmission Date: 20110219
  Serious: No
  Sender: FDA-Public Use
  Company Number: US-PFIZER INC-2006094583

PATIENT
  Sex: Female
  Weight: 90.72 kg

DRUGS (4)
  1. LYRICA [Suspect]
     Indication: NECK PAIN
     Route: 048
     Dates: start: 20060801
  2. LYRICA [Suspect]
  3. NEURONTIN [Suspect]
     Dates: end: 20060801
  4. ALL OTHER THERAPEUTIC PRODUCTS [Concomitant]

REACTIONS (3)
  - ABNORMAL DREAMS [None]
  - DRUG INEFFECTIVE [None]
  - FATIGUE [None]
